FAERS Safety Report 8696932 (Version 3)
Quarter: 2012Q4

REPORT INFORMATION
  Report Type: 
  Country: US (occurrence: US)
  Receive Date: 20120801
  Receipt Date: 20120920
  Transmission Date: 20130627
  Serious: Yes (Other)
  Sender: FDA-Public Use
  Company Number: PHHY2012US065599

PATIENT
  Age: 30 Year
  Sex: Female
  Weight: 95.24 kg

DRUGS (9)
  1. HYPROMELLOSES [Suspect]
     Indication: DRY EYE
     Dosage: UNK UKN, UNK
     Route: 047
  2. NEXIUM [Concomitant]
     Indication: GASTROOESOPHAGEAL REFLUX DISEASE
  3. SPIRONOLACTONE [Concomitant]
     Indication: POLYCYSTIC OVARIES
     Dosage: 50 mg, BID
  4. LISINOPRIL [Concomitant]
     Indication: HYPERTENSION
     Dosage: 10 mg, QD
  5. SPRINTEC [Concomitant]
     Indication: POLYCYSTIC OVARIES
  6. RESTASIS [Concomitant]
     Indication: DRY EYE
     Dosage: UNK UKN, BID
  7. XYZAL [Concomitant]
     Indication: HYPERSENSITIVITY
     Dosage: 5 mg, QD
  8. NEURONTIN [Concomitant]
     Indication: FIBROMYALGIA
     Dosage: 300 mg, BID
  9. FLEXERIL [Concomitant]
     Indication: FIBROMYALGIA

REACTIONS (3)
  - Dacryostenosis acquired [Recovered/Resolved]
  - Chalazion [Recovered/Resolved]
  - Eye infection [None]
